FAERS Safety Report 9401183 (Version 1)
Quarter: 2013Q3

REPORT INFORMATION
  Report Type: Spontaneous
  Country: US (occurrence: US)
  Receive Date: 20130715
  Receipt Date: 20130715
  Transmission Date: 20140515
  Serious: Yes (Other)
  Sender: FDA-Public Use
  Company Number: US-ELI_LILLY_AND_COMPANY-US201307003091

PATIENT
  Sex: Male
  Weight: 117.91 kg

DRUGS (11)
  1. AXIRON [Suspect]
     Indication: BLOOD TESTOSTERONE DECREASED
     Dosage: 60 MG, QD
     Route: 065
     Dates: start: 201306, end: 20130625
  2. AXIRON [Suspect]
     Dosage: 60 MG, QD
     Route: 065
     Dates: start: 20130708
  3. METOPROLOL [Concomitant]
     Dosage: 300 MG, UNKNOWN
     Route: 065
  4. DIOVAN [Concomitant]
     Dosage: 320 MG, UNKNOWN
     Route: 065
     Dates: end: 20130704
  5. NORVASC [Concomitant]
     Dosage: 10 MG, UNKNOWN
     Route: 065
     Dates: end: 20130704
  6. LISINOPRIL [Concomitant]
     Dosage: 40 MG, UNKNOWN
     Route: 065
  7. PLAVIX [Concomitant]
     Dosage: 75 MG, UNKNOWN
     Route: 065
  8. ASPIRIN [Concomitant]
     Dosage: 81 MG, UNKNOWN
     Route: 065
  9. ZANTAC [Concomitant]
     Dosage: 150 DF, UNKNOWN
     Route: 065
  10. OMEPRAZOLE [Concomitant]
     Dosage: 320 MG, UNKNOWN
     Route: 065
  11. ULORIC [Concomitant]
     Dosage: 80 MG, UNKNOWN
     Route: 065
     Dates: end: 20130704

REACTIONS (1)
  - Vascular occlusion [Unknown]
